FAERS Safety Report 5140004-7 (Version None)
Quarter: 2006Q4

REPORT INFORMATION
  Report Type: 
  Country: None (occurrence: None)
  Receive Date: 20061031
  Receipt Date: 20060516
  Transmission Date: 20070319
  Serious: Yes (Death, Hospitalization, Other)
  Sender: FDA-Public Use
  Company Number: PHBS2006BR07463

PATIENT
  Sex: Male

DRUGS (3)
  1. CORTICOSTEROIDS [Concomitant]
  2. CORTISONE ACETATE [Concomitant]
  3. FORASEQ [Suspect]
     Indication: DYSPNOEA
     Dosage: FOR 12 / BUDES 400 UG/DAY

REACTIONS (6)
  - CARDIAC DISORDER [None]
  - DYSPNOEA [None]
  - NOSOCOMIAL INFECTION [None]
  - OEDEMA PERIPHERAL [None]
  - PNEUMONIA [None]
  - SURGERY [None]
